FAERS Safety Report 16003424 (Version 1)
Quarter: 2019Q1

REPORT INFORMATION
  Report Type: Spontaneous
  Country: US (occurrence: US)
  Receive Date: 20190226
  Receipt Date: 20190226
  Transmission Date: 20190418
  Serious: Yes (Other)
  Sender: FDA-Public Use
  Company Number: US-ALEXION-A201902780

PATIENT
  Sex: Male

DRUGS (1)
  1. SOLIRIS [Suspect]
     Active Substance: ECULIZUMAB
     Indication: ATYPICAL HAEMOLYTIC URAEMIC SYNDROME
     Dosage: UNK
     Route: 042

REACTIONS (5)
  - Haemoglobin abnormal [Unknown]
  - Anaemia [Unknown]
  - End stage renal disease [Unknown]
  - Essential hypertension [Unknown]
  - Haematocrit abnormal [Unknown]
